FAERS Safety Report 8182743-X (Version None)
Quarter: 2012Q1

REPORT INFORMATION
  Report Type: 
  Country: None (occurrence: None)
  Receive Date: 20120301
  Receipt Date: 20120301
  Transmission Date: 20120608
  Serious: Yes (Disabling)
  Sender: FDA-Public Use
  Company Number: None

PATIENT
  Age: 47 Year
  Sex: Female
  Weight: 77.1115 kg

DRUGS (2)
  1. IV CONTRAST - GADOLINIUM [Suspect]
     Indication: NUCLEAR MAGNETIC RESONANCE IMAGING
  2. IV CONTRAST - GADOLINIUM [Suspect]
     Indication: SPLENIC ARTERY ANEURYSM

REACTIONS (4)
  - PAIN [None]
  - ARTHRALGIA [None]
  - INJECTION SITE EXTRAVASATION [None]
  - MUSCULAR WEAKNESS [None]
